FAERS Safety Report 18943149 (Version 1)
Quarter: 2021Q1

REPORT INFORMATION
  Report Type: Report from Study
  Country: None (occurrence: CR)
  Receive Date: 20210226
  Receipt Date: 20210226
  Transmission Date: 20210420
  Serious: Yes (Other)
  Sender: FDA-Public Use
  Company Number: CR-ABBVIE-21K-039-3782199-00

PATIENT
  Sex: Female
  Weight: 77 kg

DRUGS (3)
  1. DOXIUM [Suspect]
     Active Substance: CALCIUM DOBESILATE
     Indication: PHLEBITIS
     Route: 065
     Dates: start: 2020, end: 2020
  2. HUMIRA [Suspect]
     Active Substance: ADALIMUMAB
     Indication: ANKYLOSING SPONDYLITIS
     Route: 058
     Dates: start: 20110407, end: 20210203
  3. DOXIUM [Suspect]
     Active Substance: CALCIUM DOBESILATE
     Indication: SKIN ULCER

REACTIONS (10)
  - Skin ulcer [Recovering/Resolving]
  - Oedema peripheral [Recovering/Resolving]
  - Cellulitis [Recovering/Resolving]
  - Pain in extremity [Recovering/Resolving]
  - Drug hypersensitivity [Unknown]
  - Epigastric discomfort [Recovering/Resolving]
  - Phlebitis [Recovering/Resolving]
  - Gastric ulcer [Recovered/Resolved]
  - Vulvovaginal dryness [Unknown]
  - Pruritus allergic [Unknown]

NARRATIVE: CASE EVENT DATE: 2019
